FAERS Safety Report 18435816 (Version 1)
Quarter: 2020Q4

REPORT INFORMATION
  Report Type: Spontaneous
  Country: FR (occurrence: FR)
  Receive Date: 20201028
  Receipt Date: 20201028
  Transmission Date: 20210114
  Serious: Yes (Hospitalization)
  Sender: FDA-Public Use
  Company Number: FR-CELLTRION-2020-FR-000221

PATIENT
  Age: 57 Year
  Sex: Female

DRUGS (7)
  1. ZOPICLONE [Concomitant]
     Active Substance: ZOPICLONE
  2. LEVOFLOXACIN (NON-SPECIFIC) [Suspect]
     Active Substance: LEVOFLOXACIN
     Indication: PRODUCT USED FOR UNKNOWN INDICATION
  3. BUDESONIDE WITH FORMOTEROL [Concomitant]
  4. SALBUTAMOL [Concomitant]
     Active Substance: ALBUTEROL
  5. PRISTINAMYCIN [Suspect]
     Active Substance: PRISTINAMYCIN
  6. HYDROXYZINE [Concomitant]
     Active Substance: HYDROXYZINE HYDROCHLORIDE
  7. DIVALPROEX (NON-SPECIFIC) [Suspect]
     Active Substance: DIVALPROEX SODIUM
     Indication: BIPOLAR DISORDER

REACTIONS (2)
  - Drug ineffective [Unknown]
  - Eosinophilic pneumonia [Recovered/Resolved]
